FAERS Safety Report 16463540 (Version 3)
Quarter: 2019Q3

REPORT INFORMATION
  Report Type: Spontaneous
  Country: US (occurrence: US)
  Receive Date: 20190621
  Receipt Date: 20190926
  Transmission Date: 20191004
  Serious: Yes (Other)
  Sender: FDA-Public Use
  Company Number: US-PFIZER INC-2019265320

PATIENT
  Age: 54 Year
  Sex: Male
  Weight: 94.33 kg

DRUGS (1)
  1. VIAGRA [Suspect]
     Active Substance: SILDENAFIL CITRATE
     Indication: ERECTILE DYSFUNCTION
     Dosage: 100 MG, 1X/DAY (30-60 MIN PRIOR TO SEXUAL INTERCOURSE)
     Route: 048
     Dates: start: 201904

REACTIONS (1)
  - Drug dependence [Not Recovered/Not Resolved]
